FAERS Safety Report 4313438-8 (Version None)
Quarter: 2004Q1

REPORT INFORMATION
  Report Type: 
  Country: None (occurrence: None)
  Receive Date: 20040304
  Receipt Date: 20040218
  Transmission Date: 20041129
  Serious: Yes (Hospitalization)
  Sender: FDA-Public Use
  Company Number: USA040259756

PATIENT
  Age: 34 Year
  Sex: Female

DRUGS (5)
  1. HUMALOG [Suspect]
     Indication: DIABETES MELLITUS NON-INSULIN-DEPENDENT
     Dates: start: 20020101
  2. PREDNISONE [Concomitant]
  3. MIACALICIN (CALCITONIN, SALMON) [Concomitant]
  4. FOSAMAX [Concomitant]
  5. LANTUS [Concomitant]

REACTIONS (2)
  - ASEPTIC NECROSIS BONE [None]
  - BONE DISORDER [None]
